FAERS Safety Report 17062417 (Version 2)
Quarter: 2019Q4

REPORT INFORMATION
  Report Type: Spontaneous
  Country: ES (occurrence: ES)
  Receive Date: 20191122
  Receipt Date: 20191209
  Transmission Date: 20200122
  Serious: Yes (Other)
  Sender: FDA-Public Use
  Company Number: ES-SUN PHARMACEUTICAL INDUSTRIES LTD-2019RR-227494

PATIENT
  Sex: Male

DRUGS (3)
  1. PREDNISONE. [Concomitant]
     Active Substance: PREDNISONE
     Indication: MIGRAINE
     Dosage: 60 MILLIGRAM, TID
     Route: 065
  2. SUMATRIPTAN SUN 6 MG/0,5 ML SOLUCI?N INYECTABLE [Suspect]
     Active Substance: SUMATRIPTAN SUCCINATE
     Indication: MIGRAINE
     Dosage: 7 INJECTIONS
     Route: 065
  3. VERAPAMIL [Concomitant]
     Active Substance: VERAPAMIL HYDROCHLORIDE
     Indication: MIGRAINE
     Dosage: 80 MILLIGRAM, TID
     Route: 065

REACTIONS (3)
  - Drug ineffective [Unknown]
  - Overdose [Unknown]
  - Product substitution issue [Unknown]
